FAERS Safety Report 8821663 (Version 1)
Quarter: 2012Q4

REPORT INFORMATION
  Report Type: 
  Country: US (occurrence: US)
  Receive Date: 20121002
  Receipt Date: 20121002
  Transmission Date: 20130627
  Serious: No
  Sender: FDA-Public Use
  Company Number: US-VERTEX PHARMACEUTICAL INC.-2012-020667

PATIENT
  Sex: Male

DRUGS (6)
  1. INCIVEK [Suspect]
     Indication: HEPATITIS C
     Dosage: 750 mg, tid
     Route: 048
     Dates: start: 201206, end: 201208
  2. PEGASYS [Concomitant]
     Indication: HEPATITIS C
     Dosage: 90 ?g, UNK
     Route: 058
     Dates: start: 201206
  3. PEGASYS [Concomitant]
     Dosage: 180 ?g, UNK
     Route: 058
  4. RIBAVIRIN [Concomitant]
     Indication: HEPATITIS C
     Dosage: UNK
     Dates: start: 201206
  5. RIBAVIRIN [Concomitant]
     Dosage: 600 mg, UNK
  6. RIBAVIRIN [Concomitant]
     Dosage: 400 mg, UNK

REACTIONS (3)
  - Dizziness [Not Recovered/Not Resolved]
  - Fatigue [Not Recovered/Not Resolved]
  - Pruritus [Not Recovered/Not Resolved]
